FAERS Safety Report 21003510 (Version 1)
Quarter: 2022Q2

REPORT INFORMATION
  Report Type: Spontaneous
  Country: US (occurrence: None)
  Receive Date: 20220623
  Receipt Date: 20220623
  Transmission Date: 20220721
  Serious: Yes (Hospitalization, Other)
  Sender: FDA-Public Use
  Company Number: None

PATIENT
  Age: 77 Year
  Sex: Male

DRUGS (10)
  1. REVLIMID [Suspect]
     Active Substance: LENALIDOMIDE
     Indication: Plasma cell myeloma
     Dosage: FREQUENCY : DAILY;?
     Route: 048
     Dates: start: 20220428, end: 20220526
  2. LENALIDOMIDE [Concomitant]
  3. DEXAMETHASONE [Concomitant]
  4. ATORVASTATIN [Concomitant]
  5. TAMSULOSIN [Concomitant]
  6. ACYCLOVIR [Concomitant]
  7. ONDANSETRON [Concomitant]
  8. ASPIRIN [Concomitant]
  9. LISINOPRIL [Concomitant]
     Active Substance: LISINOPRIL
  10. OMEPRAOLE [Concomitant]

REACTIONS (5)
  - Blood pressure decreased [None]
  - Asthenia [None]
  - Fatigue [None]
  - Dyspnoea [None]
  - Blood pressure fluctuation [None]

NARRATIVE: CASE EVENT DATE: 20220526
